FAERS Safety Report 21887851 (Version 2)
Quarter: 2023Q1

REPORT INFORMATION
  Report Type: Spontaneous
  Country: GB (occurrence: GB)
  Receive Date: 20230120
  Receipt Date: 20230125
  Transmission Date: 20230418
  Serious: Yes (Hospitalization, Other)
  Sender: FDA-Public Use
  Company Number: GB-002147023-NVSC2018GB034525

PATIENT
  Age: 86 Year
  Sex: Female

DRUGS (307)
  1. BISOPROLOL FUMARATE [Suspect]
     Active Substance: BISOPROLOL FUMARATE
     Indication: Cerebrovascular accident prophylaxis
     Dosage: 10 MG, QD
     Route: 065
  2. BISOPROLOL FUMARATE [Suspect]
     Active Substance: BISOPROLOL FUMARATE
     Dosage: 10 MG, QD
     Route: 048
  3. BISOPROLOL FUMARATE [Suspect]
     Active Substance: BISOPROLOL FUMARATE
     Dosage: 10 MG, QD
     Route: 050
  4. BISOPROLOL FUMARATE [Suspect]
     Active Substance: BISOPROLOL FUMARATE
     Dosage: 10 MG, QD
     Route: 048
  5. BISOPROLOL FUMARATE [Suspect]
     Active Substance: BISOPROLOL FUMARATE
     Dosage: 10 MG, QD
     Route: 065
  6. BISOPROLOL FUMARATE [Suspect]
     Active Substance: BISOPROLOL FUMARATE
     Dosage: 10 MG, QD, 10 MG/ML
     Route: 048
  7. BISOPROLOL FUMARATE [Suspect]
     Active Substance: BISOPROLOL FUMARATE
     Dosage: 10 MG, QD, 10 MG/ML
     Route: 050
  8. BISOPROLOL FUMARATE [Suspect]
     Active Substance: BISOPROLOL FUMARATE
     Dosage: 10 MG, QD, OFF LABEL USE
     Route: 065
  9. BISOPROLOL FUMARATE [Suspect]
     Active Substance: BISOPROLOL FUMARATE
     Dosage: 10 MG (1 DAY) 10 MG, QD
     Route: 048
  10. BISOPROLOL FUMARATE [Suspect]
     Active Substance: BISOPROLOL FUMARATE
     Dosage: 10 MG (1 DAY) 10 MG, QD
     Route: 065
  11. BISOPROLOL FUMARATE [Suspect]
     Active Substance: BISOPROLOL FUMARATE
     Dosage: 10 MG (1 DAY) 10 MG, QD, OFF LABEL USE
     Route: 065
  12. BISOPROLOL FUMARATE [Suspect]
     Active Substance: BISOPROLOL FUMARATE
     Dosage: 10 MG (1 DAY) 10 MG, QD, OFF LABEL USE
     Route: 048
  13. BISOPROLOL FUMARATE [Suspect]
     Active Substance: BISOPROLOL FUMARATE
     Dosage: 10 MG (1 DAY) 10 MG, QD, OFF LABEL USE
     Route: 065
  14. BISOPROLOL FUMARATE [Suspect]
     Active Substance: BISOPROLOL FUMARATE
     Dosage: 5 MG, QD
     Route: 048
     Dates: start: 20180207, end: 20180207
  15. BISOPROLOL FUMARATE [Suspect]
     Active Substance: BISOPROLOL FUMARATE
     Dosage: 5 MG, QD
     Route: 065
  16. BISOPROLOL FUMARATE [Suspect]
     Active Substance: BISOPROLOL FUMARATE
     Dosage: 5 MG, QD
     Route: 048
  17. BISOPROLOL FUMARATE [Suspect]
     Active Substance: BISOPROLOL FUMARATE
     Dosage: 5 MG, QD
     Route: 048
     Dates: start: 20180207, end: 20180207
  18. BISOPROLOL FUMARATE [Suspect]
     Active Substance: BISOPROLOL FUMARATE
     Dosage: 5 MG, QD
     Route: 048
     Dates: end: 20180207
  19. BISOPROLOL FUMARATE [Suspect]
     Active Substance: BISOPROLOL FUMARATE
     Dosage: 5 MG, QD
     Route: 048
     Dates: start: 20180207
  20. BISOPROLOL FUMARATE [Suspect]
     Active Substance: BISOPROLOL FUMARATE
     Dosage: 5 MG, QD
     Route: 050
  21. BISOPROLOL FUMARATE [Suspect]
     Active Substance: BISOPROLOL FUMARATE
     Dosage: 5 MG, QD, OFF LABEL USE
     Route: 050
  22. BISOPROLOL FUMARATE [Suspect]
     Active Substance: BISOPROLOL FUMARATE
     Dosage: 5 MG, QD, OFF LABEL USE
     Route: 065
  23. BISOPROLOL FUMARATE [Suspect]
     Active Substance: BISOPROLOL FUMARATE
     Dosage: 5 MG, QD, OFF LABEL USE
     Route: 048
  24. BISOPROLOL FUMARATE [Suspect]
     Active Substance: BISOPROLOL FUMARATE
     Dosage: 5 MG, QD, OFF LABEL USE
     Route: 048
  25. BISOPROLOL FUMARATE [Suspect]
     Active Substance: BISOPROLOL FUMARATE
     Dosage: 5 MG, QD, OFF LABEL USE
     Route: 048
  26. BISOPROLOL FUMARATE [Suspect]
     Active Substance: BISOPROLOL FUMARATE
     Dosage: 5 MG, QD, OFF LABEL USE
     Route: 048
  27. BISOPROLOL FUMARATE [Suspect]
     Active Substance: BISOPROLOL FUMARATE
     Dosage: 5 MG, QD, OFF LABEL USE
     Route: 048
  28. CANDESARTAN CILEXETIL [Suspect]
     Active Substance: CANDESARTAN CILEXETIL
     Indication: Cerebrovascular accident prophylaxis
     Dosage: 2 MG, QD (MORNING)
     Route: 048
  29. CANDESARTAN CILEXETIL [Suspect]
     Active Substance: CANDESARTAN CILEXETIL
     Dosage: 2 MG, QD (MORNING)
     Route: 048
  30. CANDESARTAN CILEXETIL [Suspect]
     Active Substance: CANDESARTAN CILEXETIL
     Dosage: 2 MG, QD (MORNING)
     Route: 048
  31. CANDESARTAN CILEXETIL [Suspect]
     Active Substance: CANDESARTAN CILEXETIL
     Dosage: 2 MG, QD (MORNING)
     Route: 048
  32. CANDESARTAN CILEXETIL [Suspect]
     Active Substance: CANDESARTAN CILEXETIL
     Dosage: 2 MG, QD (MORNING)
     Route: 048
  33. CANDESARTAN CILEXETIL [Suspect]
     Active Substance: CANDESARTAN CILEXETIL
     Dosage: 2 MG, QD (MORNING)
     Route: 048
  34. CANDESARTAN CILEXETIL [Suspect]
     Active Substance: CANDESARTAN CILEXETIL
     Dosage: 2 MG, QD (MORNING)
     Route: 048
  35. CANDESARTAN CILEXETIL [Suspect]
     Active Substance: CANDESARTAN CILEXETIL
     Dosage: 2 MG, QD (MORNING)
     Route: 048
  36. CANDESARTAN CILEXETIL [Suspect]
     Active Substance: CANDESARTAN CILEXETIL
     Dosage: 2 MG, QD (MORNING)
     Route: 048
  37. CANDESARTAN CILEXETIL [Suspect]
     Active Substance: CANDESARTAN CILEXETIL
     Dosage: 2 MG, QD (MORNING)
     Route: 048
  38. CANDESARTAN CILEXETIL [Suspect]
     Active Substance: CANDESARTAN CILEXETIL
     Dosage: 2 MG, QD (MORNING)
     Route: 048
  39. CANDESARTAN CILEXETIL [Suspect]
     Active Substance: CANDESARTAN CILEXETIL
     Dosage: 2 MG, QD (MORNING)
     Route: 048
  40. CANDESARTAN CILEXETIL [Suspect]
     Active Substance: CANDESARTAN CILEXETIL
     Dosage: 2 MG, QD (MORNING)
     Route: 048
  41. CANDESARTAN CILEXETIL [Suspect]
     Active Substance: CANDESARTAN CILEXETIL
     Dosage: 2 MG, QD (MORNING)
     Route: 048
  42. CANDESARTAN CILEXETIL [Suspect]
     Active Substance: CANDESARTAN CILEXETIL
     Dosage: 2 MG, QD (MORNING)
     Route: 065
  43. CANDESARTAN CILEXETIL [Suspect]
     Active Substance: CANDESARTAN CILEXETIL
     Dosage: 2 MG, QD (MORNING)
     Route: 065
  44. CANDESARTAN CILEXETIL [Suspect]
     Active Substance: CANDESARTAN CILEXETIL
     Dosage: UNK
     Route: 065
  45. CANDESARTAN CILEXETIL [Suspect]
     Active Substance: CANDESARTAN CILEXETIL
     Dosage: UNK
     Route: 065
  46. CANDESARTAN CILEXETIL [Suspect]
     Active Substance: CANDESARTAN CILEXETIL
     Dosage: UNK
     Route: 065
  47. CANDESARTAN CILEXETIL [Suspect]
     Active Substance: CANDESARTAN CILEXETIL
     Dosage: UNK, OFF LABEL USE
     Route: 065
  48. CANDESARTAN CILEXETIL [Suspect]
     Active Substance: CANDESARTAN CILEXETIL
     Dosage: 2 MG, QD
     Route: 048
  49. CANDESARTAN CILEXETIL [Suspect]
     Active Substance: CANDESARTAN CILEXETIL
     Dosage: 2 MG, ONCE DAILY (QD) (MORNING)
     Route: 065
  50. CANDESARTAN CILEXETIL [Suspect]
     Active Substance: CANDESARTAN CILEXETIL
     Dosage: 2 MG, ONCE DAILY (QD) (MORNING)
     Route: 065
  51. CANDESARTAN CILEXETIL [Suspect]
     Active Substance: CANDESARTAN CILEXETIL
     Dosage: 10 MG, QD
     Route: 048
  52. CANDESARTAN CILEXETIL [Suspect]
     Active Substance: CANDESARTAN CILEXETIL
     Dosage: 10 MG, QD
     Route: 048
  53. CANDESARTAN CILEXETIL [Suspect]
     Active Substance: CANDESARTAN CILEXETIL
     Dosage: 10 MG, QD
     Route: 048
  54. CANDESARTAN CILEXETIL [Suspect]
     Active Substance: CANDESARTAN CILEXETIL
     Dosage: 10 MG, QMO, 10 MG, ONCE DAILY (QD)
     Route: 048
  55. CANDESARTAN CILEXETIL [Suspect]
     Active Substance: CANDESARTAN CILEXETIL
     Dosage: 10 MG, QMO, 10 MG, ONCE DAILY (QD) MORNING
     Route: 048
  56. CANDESARTAN CILEXETIL [Suspect]
     Active Substance: CANDESARTAN CILEXETIL
     Dosage: 1 DOSAGE FORM, QD ,MORNING, INGREDIENT CETRIZINE 10 MG HYDROCHLOROTHIADIDE 2MG
     Route: 048
  57. CETIRIZINE HYDROCHLORIDE [Suspect]
     Active Substance: CETIRIZINE HYDROCHLORIDE
     Indication: Product used for unknown indication
     Dosage: 10 MG, QD (MORNING)
     Route: 048
  58. CETIRIZINE HYDROCHLORIDE [Suspect]
     Active Substance: CETIRIZINE HYDROCHLORIDE
     Dosage: 10 MG, QD (MORNING)
     Route: 065
  59. CETIRIZINE HYDROCHLORIDE [Suspect]
     Active Substance: CETIRIZINE HYDROCHLORIDE
     Dosage: 10 MG, QD, (MORNING)
     Route: 048
  60. CETIRIZINE HYDROCHLORIDE [Suspect]
     Active Substance: CETIRIZINE HYDROCHLORIDE
     Dosage: 10 MG, QD (MORNING)
     Route: 065
  61. CETIRIZINE HYDROCHLORIDE [Suspect]
     Active Substance: CETIRIZINE HYDROCHLORIDE
     Dosage: 10 MG, QD (MORNING)
     Route: 065
  62. CETIRIZINE HYDROCHLORIDE [Suspect]
     Active Substance: CETIRIZINE HYDROCHLORIDE
     Dosage: 10 MG, QD (MORNING)
     Route: 065
  63. CETIRIZINE HYDROCHLORIDE [Suspect]
     Active Substance: CETIRIZINE HYDROCHLORIDE
     Dosage: 62.5 MG, QD (MORNING)
     Route: 065
  64. CETIRIZINE HYDROCHLORIDE [Suspect]
     Active Substance: CETIRIZINE HYDROCHLORIDE
     Dosage: 10 MG, QD (MORNING, OFF LABEL USE)
     Route: 048
  65. CETIRIZINE HYDROCHLORIDE [Suspect]
     Active Substance: CETIRIZINE HYDROCHLORIDE
     Dosage: 10 MG, QD (MORNING), OFF LABEL USE
     Route: 065
  66. CETIRIZINE HYDROCHLORIDE [Suspect]
     Active Substance: CETIRIZINE HYDROCHLORIDE
     Dosage: 10 MG, QD (MORNING), OFF LABEL USE
     Route: 065
  67. CETIRIZINE HYDROCHLORIDE [Suspect]
     Active Substance: CETIRIZINE HYDROCHLORIDE
     Dosage: 1 DOSAGE FORM, QD (MORNING, INGREDIENT CETRIZINE 10MG, HYDROCHLOROTHIADIDE 2MG)
     Route: 065
  68. SIMVASTATIN [Suspect]
     Active Substance: SIMVASTATIN
     Indication: Product used for unknown indication
     Dosage: 40 MG, QD (NIGHT)
     Route: 048
  69. SIMVASTATIN [Suspect]
     Active Substance: SIMVASTATIN
     Dosage: 40 MG, QD (NIGHT)
     Route: 065
  70. SIMVASTATIN [Suspect]
     Active Substance: SIMVASTATIN
     Dosage: 40 MG, QD (NIGHT)
     Route: 065
  71. SIMVASTATIN [Suspect]
     Active Substance: SIMVASTATIN
     Dosage: 40 MG, QD (NIGHT)
     Route: 065
  72. SIMVASTATIN [Suspect]
     Active Substance: SIMVASTATIN
     Dosage: 40 MG, QD (NIGHT)
     Route: 065
  73. SIMVASTATIN [Suspect]
     Active Substance: SIMVASTATIN
     Dosage: 40 MG, QD (NIGHT)
     Route: 065
  74. SIMVASTATIN [Suspect]
     Active Substance: SIMVASTATIN
     Dosage: 40 MG, QD (NIGHT)
     Route: 050
  75. SIMVASTATIN [Suspect]
     Active Substance: SIMVASTATIN
     Dosage: UNK
     Route: 048
  76. SIMVASTATIN [Suspect]
     Active Substance: SIMVASTATIN
     Dosage: 40 MG, QD
     Route: 065
  77. SIMVASTATIN [Suspect]
     Active Substance: SIMVASTATIN
     Dosage: 40 MG, QD
     Route: 048
  78. SIMVASTATIN [Suspect]
     Active Substance: SIMVASTATIN
     Dosage: 40 MG, QD
     Route: 065
  79. SIMVASTATIN [Suspect]
     Active Substance: SIMVASTATIN
     Dosage: 40 MG, QD (40 MILLIGRAM, ID, NIGHT)
     Route: 050
  80. SIMVASTATIN [Suspect]
     Active Substance: SIMVASTATIN
     Dosage: 40 MG, QD, ONCE A DAY
     Route: 065
  81. SIMVASTATIN [Suspect]
     Active Substance: SIMVASTATIN
     Indication: Product used for unknown indication
     Dosage: 40 MG, QD (NIGHT) (POWDER FOR INFUSION)
     Route: 048
  82. SIMVASTATIN [Suspect]
     Active Substance: SIMVASTATIN
     Dosage: 40 MG, QD, HS (POWDER FOR INFUSION)
     Route: 065
  83. SIMVASTATIN [Suspect]
     Active Substance: SIMVASTATIN
     Dosage: 40 MG, QD (POWDER FOR INFUSION)
     Route: 065
  84. SIMVASTATIN [Suspect]
     Active Substance: SIMVASTATIN
     Dosage: 40 MG, QD, HS (POWDER FOR INFUSION)
     Route: 065
  85. SIMVASTATIN [Suspect]
     Active Substance: SIMVASTATIN
     Dosage: 40 MG, QD (NIGHT) (POWDER FOR INFUSION)
     Route: 065
  86. SIMVASTATIN [Suspect]
     Active Substance: SIMVASTATIN
     Dosage: 40 MG, ONCE DAILY (QD) (NIGHT), (POWDER FOR INFUSION)
     Route: 065
  87. SIMVASTATIN [Suspect]
     Active Substance: SIMVASTATIN
     Dosage: 40 MG, ONCE DAILY (QD) (NIGHT), (POWDER FOR INFUSION)
     Route: 065
  88. SIMVASTATIN [Suspect]
     Active Substance: SIMVASTATIN
     Dosage: 40 MG, ONCE DAILY (QD) (NIGHT), (POWDER FOR INFUSION)
     Route: 065
  89. SIMVASTATIN [Suspect]
     Active Substance: SIMVASTATIN
     Dosage: 40 MG, QD, HS, POWDER FOR INFUSION
     Route: 065
  90. SIMVASTATIN [Suspect]
     Active Substance: SIMVASTATIN
     Dosage: 40 MG, ONCE DAILY (QD) (NIGHT), POWDER FOR INFUSION
     Route: 048
  91. SIMVASTATIN [Suspect]
     Active Substance: SIMVASTATIN
     Indication: Product used for unknown indication
     Dosage: 40 MG, QD
     Route: 065
  92. SIMVASTATIN [Suspect]
     Active Substance: SIMVASTATIN
     Dosage: 40 MG, QD (NIGHT)
     Route: 065
  93. SIMVASTATIN [Suspect]
     Active Substance: SIMVASTATIN
     Dosage: 40 MG, QD (NIGHT)
     Route: 065
  94. APIXABAN [Suspect]
     Active Substance: APIXABAN
     Indication: Cerebrovascular accident prophylaxis
     Dosage: 5 MG, QD
     Route: 042
     Dates: start: 20180207, end: 20180207
  95. APIXABAN [Suspect]
     Active Substance: APIXABAN
     Indication: Atrial fibrillation
     Dosage: 5 MG, QD
     Route: 065
     Dates: end: 20180207
  96. APIXABAN [Suspect]
     Active Substance: APIXABAN
     Dosage: 5 MG, QD
     Route: 065
  97. APIXABAN [Suspect]
     Active Substance: APIXABAN
     Dosage: 5 MG, QD
     Route: 042
     Dates: start: 20180207, end: 20180207
  98. APIXABAN [Suspect]
     Active Substance: APIXABAN
     Dosage: 5 MG, QD
     Route: 042
  99. APIXABAN [Suspect]
     Active Substance: APIXABAN
     Dosage: 5 MG, QD
     Route: 042
  100. APIXABAN [Suspect]
     Active Substance: APIXABAN
     Dosage: 5 MG, QD
     Route: 065
  101. APIXABAN [Suspect]
     Active Substance: APIXABAN
     Dosage: 5 MG, QD
     Route: 065
  102. APIXABAN [Suspect]
     Active Substance: APIXABAN
     Dosage: 5 MG, QD
     Route: 065
  103. APIXABAN [Suspect]
     Active Substance: APIXABAN
     Dosage: 5 MG, QD (OFF LABEL DOSING FREQUENCY)
     Route: 065
     Dates: end: 20180207
  104. APIXABAN [Suspect]
     Active Substance: APIXABAN
     Dosage: 5 MG
     Route: 065
  105. APIXABAN [Suspect]
     Active Substance: APIXABAN
     Dosage: 5 MG
     Route: 042
  106. APIXABAN [Suspect]
     Active Substance: APIXABAN
     Dosage: 5 MG
     Route: 042
  107. APIXABAN [Suspect]
     Active Substance: APIXABAN
     Dosage: 10 MG, QD, (DOSAGE FORM: UNSPECIFIED, OFF LABEL)
     Route: 042
     Dates: start: 20180207, end: 20180207
  108. APIXABAN [Suspect]
     Active Substance: APIXABAN
     Dosage: 10 MG, QD, (DOSAGE FORM: UNSPECIFIED, OFF LABEL)
     Route: 042
     Dates: start: 20180207, end: 20180207
  109. APIXABAN [Suspect]
     Active Substance: APIXABAN
     Dosage: 10 MG, QD, OFF LABEL DOSING FREQUENCY
     Route: 042
  110. APIXABAN [Suspect]
     Active Substance: APIXABAN
     Dosage: 10 MG, QD
     Route: 065
     Dates: end: 20180207
  111. APIXABAN [Suspect]
     Active Substance: APIXABAN
     Dosage: 10 MG, QD
     Route: 065
     Dates: start: 20180207
  112. APIXABAN [Suspect]
     Active Substance: APIXABAN
     Dosage: 10 MG, QD
     Route: 042
  113. APIXABAN [Suspect]
     Active Substance: APIXABAN
     Dosage: 10 MG, QD
     Route: 042
  114. APIXABAN [Suspect]
     Active Substance: APIXABAN
     Dosage: 10 MG, QD
     Route: 042
  115. APIXABAN [Suspect]
     Active Substance: APIXABAN
     Dosage: 10 MG, QD
     Route: 042
  116. APIXABAN [Suspect]
     Active Substance: APIXABAN
     Dosage: 10 MG, QD
     Route: 065
  117. APIXABAN [Suspect]
     Active Substance: APIXABAN
     Dosage: UNK
     Route: 065
  118. LINAGLIPTIN [Suspect]
     Active Substance: LINAGLIPTIN
     Indication: Product used for unknown indication
     Dosage: 5 MG, QD (MORNING, OFF LABEL USE)
     Route: 065
  119. LINAGLIPTIN [Suspect]
     Active Substance: LINAGLIPTIN
     Dosage: 5 MG, QD (MORNING)
     Route: 065
  120. LINAGLIPTIN [Suspect]
     Active Substance: LINAGLIPTIN
     Dosage: 5 MG, QD
     Route: 065
  121. LINAGLIPTIN [Suspect]
     Active Substance: LINAGLIPTIN
     Dosage: 5 MG, ONCE DAILY QD (MORNING)
     Route: 065
  122. LINAGLIPTIN [Suspect]
     Active Substance: LINAGLIPTIN
     Dosage: 5 MG, ONCE DAY (MORNING)
     Route: 065
  123. LINAGLIPTIN [Suspect]
     Active Substance: LINAGLIPTIN
     Dosage: 5 UG, QD (MORNING)
     Route: 065
  124. LINAGLIPTIN [Suspect]
     Active Substance: LINAGLIPTIN
     Dosage: 5 UG, QD (MORNING)
     Route: 065
  125. LINAGLIPTIN [Suspect]
     Active Substance: LINAGLIPTIN
     Dosage: 5 UG, QD (MORNING)
     Route: 065
  126. LINAGLIPTIN [Suspect]
     Active Substance: LINAGLIPTIN
     Dosage: 5 UG, QD
     Route: 065
  127. LINAGLIPTIN [Suspect]
     Active Substance: LINAGLIPTIN
     Dosage: 40 MG, QD (NIGHT)
     Route: 065
  128. LINAGLIPTIN [Suspect]
     Active Substance: LINAGLIPTIN
     Dosage: UNK
     Route: 065
  129. LEVOTHYROXINE SODIUM [Suspect]
     Active Substance: LEVOTHYROXINE SODIUM
     Indication: Product used for unknown indication
     Dosage: 125 UG, QD (MORNING)
     Route: 065
  130. LEVOTHYROXINE SODIUM [Suspect]
     Active Substance: LEVOTHYROXINE SODIUM
     Dosage: 50 MCG, ONCE DAILY (QD) (MORNING)
     Route: 050
  131. LEVOTHYROXINE SODIUM [Suspect]
     Active Substance: LEVOTHYROXINE SODIUM
     Dosage: 1 DOSAGE FORM, QD
     Route: 065
  132. LEVOTHYROXINE SODIUM [Suspect]
     Active Substance: LEVOTHYROXINE SODIUM
     Dosage: 12 UG, QD
     Route: 065
  133. LEVOTHYROXINE SODIUM [Suspect]
     Active Substance: LEVOTHYROXINE SODIUM
     Dosage: UNK, QD
     Route: 065
  134. LEVOTHYROXINE SODIUM [Suspect]
     Active Substance: LEVOTHYROXINE SODIUM
     Dosage: 50 MG, QD (POWDER)
     Route: 065
  135. LEVOTHYROXINE SODIUM [Suspect]
     Active Substance: LEVOTHYROXINE SODIUM
     Dosage: 125 UG, QD
     Route: 065
  136. LEVOTHYROXINE SODIUM [Suspect]
     Active Substance: LEVOTHYROXINE SODIUM
     Dosage: 1 DF - 50G, ONCE DAILY (QD)125 UG, QD (MORNING)
     Route: 065
  137. LEVOTHYROXINE SODIUM [Suspect]
     Active Substance: LEVOTHYROXINE SODIUM
     Dosage: 50 UG, QD (MORNING)
     Route: 065
  138. LEVOTHYROXINE SODIUM [Suspect]
     Active Substance: LEVOTHYROXINE SODIUM
     Dosage: 12 MCG, QD
     Route: 065
  139. LEVOTHYROXINE SODIUM [Suspect]
     Active Substance: LEVOTHYROXINE SODIUM
     Dosage: 1 DOSAGE FORM, QD
     Route: 065
  140. LEVOTHYROXINE SODIUM [Suspect]
     Active Substance: LEVOTHYROXINE SODIUM
     Dosage: 1 DOSAGE FORM, 50G, QD
     Route: 065
  141. LEVOTHYROXINE SODIUM [Suspect]
     Active Substance: LEVOTHYROXINE SODIUM
     Dosage: 30 MG, QD (MORNING) (30 MG/ML)
     Route: 065
  142. LEVOTHYROXINE SODIUM [Suspect]
     Active Substance: LEVOTHYROXINE SODIUM
     Dosage: 50 MG, QD (MORNING)
     Route: 065
  143. LEVOTHYROXINE SODIUM [Suspect]
     Active Substance: LEVOTHYROXINE SODIUM
     Dosage: 10 MG, QD, (5 MG, QD)
     Route: 065
  144. LEVOTHYROXINE SODIUM [Suspect]
     Active Substance: LEVOTHYROXINE SODIUM
     Dosage: 50 G, QD, (1 DF - 50G, ONCE DAILY (QD)125 UG, QD (MORNING))
     Route: 065
  145. LEVOTHYROXINE SODIUM [Suspect]
     Active Substance: LEVOTHYROXINE SODIUM
     Dosage: 50 MG, QD, (1 DF - 50G, ONCE DAILY)
     Route: 065
  146. LEVOTHYROXINE SODIUM [Suspect]
     Active Substance: LEVOTHYROXINE SODIUM
     Dosage: 50 UG, QD, (50 MCG, QD (50 MCG MORNING))
     Route: 065
  147. LEVOTHYROXINE SODIUM [Suspect]
     Active Substance: LEVOTHYROXINE SODIUM
     Dosage: 50 MG, QD
     Route: 066
  148. LEVOTHYROXINE SODIUM [Suspect]
     Active Substance: LEVOTHYROXINE SODIUM
     Dosage: 12 UG, QD (1 DF 50G, MORNING)
     Route: 065
  149. LEVOTHYROXINE SODIUM [Suspect]
     Active Substance: LEVOTHYROXINE SODIUM
     Dosage: 5 MG, QD
     Route: 065
  150. LEVOTHYROXINE SODIUM [Suspect]
     Active Substance: LEVOTHYROXINE SODIUM
     Dosage: 50 G, QD (1 DF)
     Route: 065
  151. LEVOTHYROXINE SODIUM [Suspect]
     Active Substance: LEVOTHYROXINE SODIUM
     Dosage: 1 DOSAGE FORM, QD (OFF LABEL USE FORMULATION- POWDER FOR INFUSION)
     Route: 065
  152. LEVOTHYROXINE SODIUM [Suspect]
     Active Substance: LEVOTHYROXINE SODIUM
     Dosage: 50 MG
     Route: 065
  153. LEVOTHYROXINE SODIUM [Suspect]
     Active Substance: LEVOTHYROXINE SODIUM
     Dosage: 12 UG, QD
     Route: 048
  154. LEVOTHYROXINE SODIUM [Suspect]
     Active Substance: LEVOTHYROXINE SODIUM
     Dosage: 50 UG, QD (MORNING)
     Route: 065
  155. LEVOTHYROXINE SODIUM [Suspect]
     Active Substance: LEVOTHYROXINE SODIUM
     Dosage: 1 DOSAGE FORM, QD
     Route: 065
  156. LEVOTHYROXINE SODIUM [Suspect]
     Active Substance: LEVOTHYROXINE SODIUM
     Dosage: 50 G, QD
     Route: 065
  157. LEVOTHYROXINE SODIUM [Suspect]
     Active Substance: LEVOTHYROXINE SODIUM
     Dosage: 125 UG, QD
     Route: 065
  158. LEVOTHYROXINE SODIUM [Suspect]
     Active Substance: LEVOTHYROXINE SODIUM
     Dosage: 50 UG, QD
     Route: 065
  159. LEVOTHYROXINE SODIUM [Suspect]
     Active Substance: LEVOTHYROXINE SODIUM
     Dosage: 125 UG, QD 12 UG, QD 1 DF - 50G, ONCE DAILY (QD) 125 UG, QD (MORNING)
     Route: 065
  160. LEVOTHYROXINE SODIUM [Suspect]
     Active Substance: LEVOTHYROXINE SODIUM
     Dosage: 50 MG, 1 DF
     Route: 065
  161. LEVOTHYROXINE SODIUM [Suspect]
     Active Substance: LEVOTHYROXINE SODIUM
     Dosage: 50 UG, QD (MORNING)
     Route: 065
  162. LEVOTHYROXINE SODIUM [Suspect]
     Active Substance: LEVOTHYROXINE SODIUM
     Dosage: 12 UG, QD
     Route: 065
  163. LEVOTHYROXINE SODIUM [Suspect]
     Active Substance: LEVOTHYROXINE SODIUM
     Dosage: 125 UG, QD (MORNING)
     Route: 065
  164. LEVOTHYROXINE SODIUM [Suspect]
     Active Substance: LEVOTHYROXINE SODIUM
     Dosage: 30 UG, QD (30 MG, ONCE DAILY MORNING)
     Route: 065
  165. LEVOTHYROXINE SODIUM [Suspect]
     Active Substance: LEVOTHYROXINE SODIUM
     Dosage: 5 MG, QD (MORNING)
     Route: 065
  166. LEVOTHYROXINE SODIUM [Suspect]
     Active Substance: LEVOTHYROXINE SODIUM
     Dosage: 1 DOSAGE FORM, QD (TABLET)
     Route: 065
  167. LEVOTHYROXINE SODIUM [Suspect]
     Active Substance: LEVOTHYROXINE SODIUM
     Dosage: 10 MG, QD  (10 MILLIGRAM, QD; 5 MG, QD)
     Route: 065
  168. LEVOTHYROXINE SODIUM [Suspect]
     Active Substance: LEVOTHYROXINE SODIUM
     Dosage: 12 UG, QD
     Route: 065
  169. LEVOTHYROXINE SODIUM [Suspect]
     Active Substance: LEVOTHYROXINE SODIUM
     Dosage: 125 UG, QD
     Route: 065
  170. LEVOTHYROXINE SODIUM [Suspect]
     Active Substance: LEVOTHYROXINE SODIUM
     Dosage: 30 MG, QD (30 MG/ML)
     Route: 065
  171. LEVOTHYROXINE SODIUM [Suspect]
     Active Substance: LEVOTHYROXINE SODIUM
     Dosage: 50 UG, QD
     Route: 065
  172. LEVOTHYROXINE SODIUM [Suspect]
     Active Substance: LEVOTHYROXINE SODIUM
     Dosage: 50 UG, QD
     Route: 065
  173. LEVOTHYROXINE SODIUM [Suspect]
     Active Substance: LEVOTHYROXINE SODIUM
     Dosage: 50 UG, QD (50 MCG, 1 DF, UNK)
     Route: 065
  174. LEVOTHYROXINE SODIUM [Suspect]
     Active Substance: LEVOTHYROXINE SODIUM
     Dosage: 5 MG, QD (MORNING)
     Route: 065
  175. LEVOTHYROXINE SODIUM [Suspect]
     Active Substance: LEVOTHYROXINE SODIUM
     Dosage: UNK, QD
     Route: 065
  176. LEVOTHYROXINE SODIUM [Suspect]
     Active Substance: LEVOTHYROXINE SODIUM
     Dosage: 1 DOSAGE FORM
     Route: 065
  177. LEVOTHYROXINE SODIUM [Suspect]
     Active Substance: LEVOTHYROXINE SODIUM
     Dosage: 50 MCG, ONCE DAILY (QD) (MORNING)
     Route: 065
  178. LEVOTHYROXINE SODIUM [Suspect]
     Active Substance: LEVOTHYROXINE SODIUM
     Dosage: 50 UG, QD (50 MCG, 1 DF, UNK)
     Route: 065
  179. LEVOTHYROXINE SODIUM [Suspect]
     Active Substance: LEVOTHYROXINE SODIUM
     Indication: Product used for unknown indication
     Dosage: UNK
     Route: 065
  180. LEVOTHYROXINE SODIUM [Suspect]
     Active Substance: LEVOTHYROXINE SODIUM
     Dosage: 50 MG, QD (50 MILLIGRAM; 1 DF, UNK)
     Route: 065
  181. LANSOPRAZOLE [Suspect]
     Active Substance: LANSOPRAZOLE
     Indication: Product used for unknown indication
     Dosage: 30 MG, QD (MORNING) CAPSULE
     Route: 065
  182. LANSOPRAZOLE [Suspect]
     Active Substance: LANSOPRAZOLE
     Dosage: 30 MG, QD
     Route: 065
  183. LANSOPRAZOLE [Suspect]
     Active Substance: LANSOPRAZOLE
     Dosage: 10 MG, QD
     Route: 048
  184. LANSOPRAZOLE [Suspect]
     Active Substance: LANSOPRAZOLE
     Dosage: 10 MG, QD (5 MG, QD)
     Route: 065
     Dates: start: 20180207, end: 20180207
  185. LANSOPRAZOLE [Suspect]
     Active Substance: LANSOPRAZOLE
     Dosage: 10 MG, QD (5MG, QD)
     Route: 065
     Dates: end: 20180207
  186. LANSOPRAZOLE [Suspect]
     Active Substance: LANSOPRAZOLE
     Dosage: 10 MG, QD (5MG, QD)
     Route: 065
     Dates: start: 20180207, end: 20180218
  187. LANSOPRAZOLE [Suspect]
     Active Substance: LANSOPRAZOLE
     Dosage: 10 MG, QD
     Route: 065
     Dates: end: 20180218
  188. LANSOPRAZOLE [Suspect]
     Active Substance: LANSOPRAZOLE
     Dosage: 10 MG, QD (10 MILLIGRAM, QD, (10 MG (1 DAY)
     Route: 065
     Dates: start: 20180207, end: 20180207
  189. LANSOPRAZOLE [Suspect]
     Active Substance: LANSOPRAZOLE
     Dosage: 10 MG, QD (10 MILLIGRAM, QD, (10 MG (1 DAY)
     Route: 065
     Dates: end: 20180218
  190. LANSOPRAZOLE [Suspect]
     Active Substance: LANSOPRAZOLE
     Dosage: 10 MG, QD
     Route: 065
     Dates: start: 20180207, end: 20180207
  191. LANSOPRAZOLE [Suspect]
     Active Substance: LANSOPRAZOLE
     Dosage: 5 MG, QD
     Route: 065
     Dates: end: 20220218
  192. LANSOPRAZOLE [Suspect]
     Active Substance: LANSOPRAZOLE
     Dosage: 5 MG, QD, (10 MG (1 DAY) / 1 / 10 MILLIGRAM / 1 DAYS)
     Route: 065
     Dates: start: 20180207, end: 20180207
  193. LANSOPRAZOLE [Suspect]
     Active Substance: LANSOPRAZOLE
     Dosage: 5 MG, QD
     Route: 065
     Dates: start: 20180207, end: 20220218
  194. LANSOPRAZOLE [Suspect]
     Active Substance: LANSOPRAZOLE
     Dosage: 10 MG, QD (5 MG QD)
     Route: 065
  195. LANSOPRAZOLE [Suspect]
     Active Substance: LANSOPRAZOLE
     Dosage: 10 MG QD, (10 MILLIGRAM, QD; 5MG, QD)
     Route: 065
  196. LANSOPRAZOLE [Suspect]
     Active Substance: LANSOPRAZOLE
     Dosage: 10 MG, QD (10 MG (1 DAY))
     Route: 065
  197. LANSOPRAZOLE [Suspect]
     Active Substance: LANSOPRAZOLE
     Dosage: 10 MG, QD (OFF LABEL USE)
     Route: 065
  198. LANSOPRAZOLE [Suspect]
     Active Substance: LANSOPRAZOLE
     Dosage: 10 MILLIGRAM, QD, (10 MG (1 DAY))
     Route: 065
  199. LANSOPRAZOLE [Suspect]
     Active Substance: LANSOPRAZOLE
     Dosage: 10 MG, QD (1 DAY)
     Route: 065
  200. LANSOPRAZOLE [Suspect]
     Active Substance: LANSOPRAZOLE
     Dosage: 5 MG, QD (10 MG (1 DAY)/ 1/ 10 MILLIGRAM/ 1 DAYS)
     Route: 065
  201. LANSOPRAZOLE [Suspect]
     Active Substance: LANSOPRAZOLE
     Dosage: 5 MG, QD
     Route: 065
  202. LANSOPRAZOLE [Suspect]
     Active Substance: LANSOPRAZOLE
     Dosage: 5 MG, QD
     Route: 065
  203. LANSOPRAZOLE [Suspect]
     Active Substance: LANSOPRAZOLE
     Dosage: 5 MG, QD
     Route: 065
  204. LANSOPRAZOLE [Suspect]
     Active Substance: LANSOPRAZOLE
     Dosage: 5 MG, QD
     Route: 065
  205. LANSOPRAZOLE [Suspect]
     Active Substance: LANSOPRAZOLE
     Dosage: 5 MG, QD (10 MG QD)
     Route: 065
  206. LANSOPRAZOLE [Suspect]
     Active Substance: LANSOPRAZOLE
     Dosage: 5 MG, QD
     Route: 065
  207. LANSOPRAZOLE [Suspect]
     Active Substance: LANSOPRAZOLE
     Dosage: 30 MG, QD (MORNING)
     Route: 065
  208. LANSOPRAZOLE [Suspect]
     Active Substance: LANSOPRAZOLE
     Dosage: 30 MG, QD (MORNING)
     Route: 065
  209. LANSOPRAZOLE [Suspect]
     Active Substance: LANSOPRAZOLE
     Dosage: 30 MG, QD (MORNING)
     Route: 065
  210. DIGOXIN [Suspect]
     Active Substance: DIGOXIN
     Indication: Cerebrovascular accident prophylaxis
     Dosage: 62.5 UG, QD (MORNING)
     Route: 065
  211. DIGOXIN [Suspect]
     Active Substance: DIGOXIN
     Dosage: 62.5 G, QD
     Route: 065
  212. DIGOXIN [Suspect]
     Active Substance: DIGOXIN
     Dosage: 62.5 UG, QD (MORNING) (OFF LABEL USE)
     Route: 065
  213. DIGOXIN [Suspect]
     Active Substance: DIGOXIN
     Dosage: 62.5 UG, QD (MORNING)
     Route: 065
  214. DIGOXIN [Suspect]
     Active Substance: DIGOXIN
     Dosage: 62.5 UG, QD (MORNING)
     Route: 065
  215. DIGOXIN [Suspect]
     Active Substance: DIGOXIN
     Dosage: 62.5 UG, QD (MORNING)
     Route: 065
  216. DIGOXIN [Suspect]
     Active Substance: DIGOXIN
     Dosage: 62.5 UG, QD (MORNING)
     Route: 065
  217. DIGOXIN [Suspect]
     Active Substance: DIGOXIN
     Dosage: 62.5 UG, QD (MORNING)
     Route: 065
  218. DIGOXIN [Suspect]
     Active Substance: DIGOXIN
     Dosage: 62.5 UG, QD (MORNING)
     Route: 065
  219. DIGOXIN [Suspect]
     Active Substance: DIGOXIN
     Dosage: 62.5 UG, QD (MORNING)
     Route: 065
  220. DIGOXIN [Suspect]
     Active Substance: DIGOXIN
     Dosage: 62.5 UG, QD (MORNING)
     Route: 065
  221. DIGOXIN [Suspect]
     Active Substance: DIGOXIN
     Dosage: 62 MICROGRAM, ONCE A DAY (MORNING)
     Route: 065
  222. DIGOXIN [Suspect]
     Active Substance: DIGOXIN
     Dosage: 63 DOSAGE FORM, QD (63 MCG/DAY) (OFF LABEL USE)
     Route: 065
  223. DIGOXIN [Suspect]
     Active Substance: DIGOXIN
     Dosage: 63 UG, QD
     Route: 065
  224. DIGOXIN [Suspect]
     Active Substance: DIGOXIN
     Dosage: 63 UG, QD (OFF LABEL USE)
     Route: 065
  225. DIGOXIN [Suspect]
     Active Substance: DIGOXIN
     Dosage: 63 DOSAGE FORM, QD
     Route: 065
  226. DIGOXIN [Suspect]
     Active Substance: DIGOXIN
     Dosage: 50 MG, QD (MORNING, OFF LABEL USE)
     Route: 048
  227. DIGOXIN [Suspect]
     Active Substance: DIGOXIN
     Dosage: 50 MG, QD (MORNING)
     Route: 065
  228. DIGOXIN [Suspect]
     Active Substance: DIGOXIN
     Dosage: 4 UG (OFF LABEL USE)
     Route: 065
  229. DIGOXIN [Suspect]
     Active Substance: DIGOXIN
     Dosage: 4 UG, QD
     Route: 065
  230. DIGOXIN [Suspect]
     Active Substance: DIGOXIN
     Dosage: 4 UG, QD (4 MICROGRAM)
     Route: 065
  231. DIGOXIN [Suspect]
     Active Substance: DIGOXIN
     Dosage: 1 UG
     Route: 065
  232. DIGOXIN [Suspect]
     Active Substance: DIGOXIN
     Dosage: 1 UG, QD
     Route: 065
  233. ISOSORBIDE [Suspect]
     Active Substance: ISOSORBIDE
     Indication: Cerebrovascular accident prophylaxis
     Dosage: 50 MG, QD (MORNING)
     Route: 048
  234. ISOSORBIDE [Suspect]
     Active Substance: ISOSORBIDE
     Dosage: 50 MG, QD (MORNING)
     Route: 065
  235. ISOSORBIDE [Suspect]
     Active Substance: ISOSORBIDE
     Dosage: UNK
     Route: 065
  236. ISOSORBIDE [Suspect]
     Active Substance: ISOSORBIDE
     Dosage: 50 MG, QD (MORNING)
     Route: 048
  237. ISOSORBIDE [Suspect]
     Active Substance: ISOSORBIDE
     Dosage: 50 MG, QD (MORNING)
     Route: 048
  238. ISOSORBIDE [Suspect]
     Active Substance: ISOSORBIDE
     Dosage: 50 MG, QD (MORNING)
     Route: 065
  239. ISOSORBIDE [Suspect]
     Active Substance: ISOSORBIDE
     Dosage: 50 MG, QD (MORNING)
     Route: 065
  240. CANDESARTAN [Suspect]
     Active Substance: CANDESARTAN
     Indication: Cerebrovascular accident prophylaxis
     Dosage: 2 MG, QD MORNING; OFF LABEL USE
     Route: 048
  241. CANDESARTAN [Suspect]
     Active Substance: CANDESARTAN
     Dosage: UNK
     Route: 065
  242. CANDESARTAN [Suspect]
     Active Substance: CANDESARTAN
     Dosage: 2 MG, QD (MORNING)
     Route: 048
  243. CANDESARTAN [Suspect]
     Active Substance: CANDESARTAN
     Dosage: 2 MG, QD
     Route: 065
  244. CANDESARTAN [Suspect]
     Active Substance: CANDESARTAN
     Dosage: 2 MG, ONCE DAILY (QD)
     Route: 048
  245. CANDESARTAN [Suspect]
     Active Substance: CANDESARTAN
     Dosage: 2 MG, ONCE DAILY/2 MG, QD MORNING
     Route: 048
  246. CANDESARTAN [Suspect]
     Active Substance: CANDESARTAN
     Dosage: 2 MG, QD, 2 MG ONCE DAILY (QD)
     Route: 048
  247. CANDESARTAN [Suspect]
     Active Substance: CANDESARTAN
     Dosage: 2 MG, QD
     Route: 048
  248. HYDROCHLOROTHIAZIDE [Suspect]
     Active Substance: HYDROCHLOROTHIAZIDE
     Indication: Cerebrovascular accident prophylaxis
     Dosage: 2 MG, QD (MORNING)
     Route: 048
  249. HYDROCHLOROTHIAZIDE [Suspect]
     Active Substance: HYDROCHLOROTHIAZIDE
     Dosage: 1 DOSAGE FORM, QD, (MORNING)
     Route: 065
  250. HYDROCHLOROTHIAZIDE [Suspect]
     Active Substance: HYDROCHLOROTHIAZIDE
     Dosage: 2 MG, QD (MORNING)
     Route: 065
  251. HYDROCHLOROTHIAZIDE [Suspect]
     Active Substance: HYDROCHLOROTHIAZIDE
     Dosage: 2 MG, QD
     Route: 065
  252. HYDROCHLOROTHIAZIDE [Suspect]
     Active Substance: HYDROCHLOROTHIAZIDE
     Dosage: 2 MG, QD
     Route: 065
  253. HYDROCHLOROTHIAZIDE [Suspect]
     Active Substance: HYDROCHLOROTHIAZIDE
     Dosage: 2 MG, QD (MORNING)
     Route: 050
  254. HYDROCHLOROTHIAZIDE [Suspect]
     Active Substance: HYDROCHLOROTHIAZIDE
     Dosage: UNK
     Route: 065
  255. HYDROCHLOROTHIAZIDE [Suspect]
     Active Substance: HYDROCHLOROTHIAZIDE
     Dosage: 10 MG, QD (10 MILLIGRAM/ML)
     Route: 050
  256. HYDROCHLOROTHIAZIDE [Suspect]
     Active Substance: HYDROCHLOROTHIAZIDE
     Dosage: 1 DOSAGE FORM, QD, (MORNING)
     Route: 065
  257. HYDROCHLOROTHIAZIDE [Suspect]
     Active Substance: HYDROCHLOROTHIAZIDE
     Dosage: 1 DOSAGE FORM, ONCE A DAY, (MORNING)
     Route: 065
  258. HYDROCHLOROTHIAZIDE [Suspect]
     Active Substance: HYDROCHLOROTHIAZIDE
     Dosage: 2 MG, QD (MORNING, 1 DOSAGE FORM, OFF LABEL USE)
     Route: 065
  259. HYDROCHLOROTHIAZIDE [Suspect]
     Active Substance: HYDROCHLOROTHIAZIDE
     Dosage: 10 MG, QD (10 MG/ML)
     Route: 065
  260. ISOSORBIDE MONONITRATE [Suspect]
     Active Substance: ISOSORBIDE MONONITRATE
     Indication: Product used for unknown indication
     Dosage: 50 MG, QD (MORNING, FORMUATION- DURULE OFF LABEL USE)
     Route: 048
  261. ISOSORBIDE MONONITRATE [Suspect]
     Active Substance: ISOSORBIDE MONONITRATE
     Dosage: UNK (FORMUATION- DURULE OFF LABEL USE)
     Route: 065
  262. ISOSORBIDE MONONITRATE [Suspect]
     Active Substance: ISOSORBIDE MONONITRATE
     Dosage: 50 MG, QD (MORNING)
     Route: 048
  263. ISOSORBIDE MONONITRATE [Suspect]
     Active Substance: ISOSORBIDE MONONITRATE
     Dosage: 50 MG, QD (MORNING)
     Route: 048
  264. ISOSORBIDE MONONITRATE [Suspect]
     Active Substance: ISOSORBIDE MONONITRATE
     Dosage: 50 MG, ONCE A DAY (MORNING)
     Route: 048
  265. ISOSORBIDE MONONITRATE [Suspect]
     Active Substance: ISOSORBIDE MONONITRATE
     Dosage: 50 MG, ONCE A DAY (MORNING)
     Route: 048
  266. ISOSORBIDE MONONITRATE [Suspect]
     Active Substance: ISOSORBIDE MONONITRATE
     Dosage: 50 MG, QD (MORNING)
     Route: 065
  267. ISOSORBIDE MONONITRATE [Suspect]
     Active Substance: ISOSORBIDE MONONITRATE
     Dosage: 50 MG, QD (MORNING)
     Route: 065
  268. ISOSORBIDE MONONITRATE [Suspect]
     Active Substance: ISOSORBIDE MONONITRATE
     Dosage: UNK
     Route: 048
  269. ISOSORBIDE MONONITRATE [Suspect]
     Active Substance: ISOSORBIDE MONONITRATE
     Dosage: UNK
     Route: 048
  270. ISOSORBIDE MONONITRATE [Suspect]
     Active Substance: ISOSORBIDE MONONITRATE
     Dosage: UNK
     Route: 048
  271. ISOSORBIDE MONONITRATE [Suspect]
     Active Substance: ISOSORBIDE MONONITRATE
     Dosage: UNK
     Route: 048
  272. ISOSORBIDE DINITRATE [Suspect]
     Active Substance: ISOSORBIDE DINITRATE
     Indication: Product used for unknown indication
     Dosage: 50 MG, QD
     Route: 048
  273. ISOSORBIDE DINITRATE [Suspect]
     Active Substance: ISOSORBIDE DINITRATE
     Dosage: 50 MG, QD
     Route: 065
  274. ISOSORBIDE DINITRATE [Suspect]
     Active Substance: ISOSORBIDE DINITRATE
     Dosage: UNK
     Route: 048
  275. ISOSORBIDE DINITRATE [Suspect]
     Active Substance: ISOSORBIDE DINITRATE
     Dosage: 50 MG, QD (MORNING)
     Route: 048
  276. ISOSORBIDE DINITRATE [Suspect]
     Active Substance: ISOSORBIDE DINITRATE
     Dosage: 50 MG, QD (MORNING)
     Route: 048
  277. ISOSORBIDE DINITRATE [Suspect]
     Active Substance: ISOSORBIDE DINITRATE
     Dosage: 50 MG, QD (MORNING)
     Route: 048
  278. ISOSORBIDE DINITRATE [Suspect]
     Active Substance: ISOSORBIDE DINITRATE
     Dosage: 50 MG, QD (MORNING)
     Route: 065
  279. ISOSORBIDE DINITRATE [Suspect]
     Active Substance: ISOSORBIDE DINITRATE
     Dosage: 50 MG, QD (MORNING)
     Route: 065
  280. CETIRIZINE [Suspect]
     Active Substance: CETIRIZINE HYDROCHLORIDE
     Indication: Product used for unknown indication
     Dosage: 1 DOSAGE FORM, QD (MORNING), INGREDIENT (CETIRIZINE): 10MG; INGREDIENT (HYDROCHLOROTHIAZIDE)
     Route: 048
  281. CETIRIZINE [Suspect]
     Active Substance: CETIRIZINE HYDROCHLORIDE
     Dosage: 10 MG, QD (MORNING)
     Route: 048
  282. CETIRIZINE [Suspect]
     Active Substance: CETIRIZINE HYDROCHLORIDE
     Dosage: 10 MG, QD (MORNING)
     Route: 048
  283. CETIRIZINE [Suspect]
     Active Substance: CETIRIZINE HYDROCHLORIDE
     Dosage: 10 MG, QD (MORNING)
     Route: 048
  284. CETIRIZINE [Suspect]
     Active Substance: CETIRIZINE HYDROCHLORIDE
     Dosage: 10 MG, QD (MORNING)
     Route: 048
  285. CETIRIZINE [Suspect]
     Active Substance: CETIRIZINE HYDROCHLORIDE
     Dosage: 10 MG, QD
     Route: 065
  286. CETIRIZINE [Suspect]
     Active Substance: CETIRIZINE HYDROCHLORIDE
     Dosage: 6.25 UG, QD (MORNING)
     Route: 065
  287. IMDUR [Suspect]
     Active Substance: ISOSORBIDE MONONITRATE
     Indication: Product used for unknown indication
     Dosage: 50 MG, QD (MORNING)
     Route: 048
  288. IMDUR [Suspect]
     Active Substance: ISOSORBIDE MONONITRATE
     Dosage: 50 MG, QD
     Route: 048
  289. IMDUR [Suspect]
     Active Substance: ISOSORBIDE MONONITRATE
     Dosage: UNK
     Route: 048
  290. IMDUR [Suspect]
     Active Substance: ISOSORBIDE MONONITRATE
     Dosage: 50 MG, QD (IN MORNING)
     Route: 048
  291. IMDUR [Suspect]
     Active Substance: ISOSORBIDE MONONITRATE
     Dosage: 50 MG, QD (IN MORNING)
     Route: 065
  292. IMDUR [Suspect]
     Active Substance: ISOSORBIDE MONONITRATE
     Dosage: UNK
     Route: 048
  293. IMDUR [Suspect]
     Active Substance: ISOSORBIDE MONONITRATE
     Dosage: 50 MG, QD (MORNING)
     Route: 065
  294. IMDUR [Suspect]
     Active Substance: ISOSORBIDE MONONITRATE
     Dosage: 50 MG, QD
     Route: 048
  295. IMDUR [Suspect]
     Active Substance: ISOSORBIDE MONONITRATE
     Dosage: 50 MG, QD (MORNING)
     Route: 065
  296. LINAGLIPTIN [Suspect]
     Active Substance: LINAGLIPTIN
     Indication: Product used for unknown indication
     Dosage: 5 MG, QD
     Route: 065
  297. LEVOTHYROXINE [Suspect]
     Active Substance: LEVOTHYROXINE
     Indication: Product used for unknown indication
     Dosage: 50 MCG, QD (50 MCG MORMING), TABLET
     Route: 065
  298. LEVOTHYROXINE [Suspect]
     Active Substance: LEVOTHYROXINE
     Dosage: 1 DF, TABLET
     Route: 065
  299. LEVOTHYROXINE [Suspect]
     Active Substance: LEVOTHYROXINE
     Dosage: 125 MCG, QD (MORNING), TABLET
     Route: 065
  300. LEVOTHYROXINE [Suspect]
     Active Substance: LEVOTHYROXINE
     Dosage: 1 DOSAGE FORM (TABLET, 50G, ONCE DAILY (QD))
     Route: 065
  301. LEVOTHYROXINE [Suspect]
     Active Substance: LEVOTHYROXINE
     Dosage: 10 MG (10MG,QD)
     Route: 065
  302. LEVOTHYROXINE [Suspect]
     Active Substance: LEVOTHYROXINE
     Dosage: 12 UG (1 DF - 50G, ONCE DAILY (QD)125 UG, QD (MORNING)
     Route: 065
  303. LEVOTHYROXINE [Suspect]
     Active Substance: LEVOTHYROXINE
     Dosage: 30 MG/KG, QD (30MILLIGRAM/KILOGRAM,QD (MORNING); 30MG/MLP)
     Route: 065
  304. LEVOTHYROXINE [Suspect]
     Active Substance: LEVOTHYROXINE
     Dosage: 50 UG (50 MCG MORMING), TABLET
     Route: 050
  305. BISOPROLOL [Suspect]
     Active Substance: BISOPROLOL
     Indication: Product used for unknown indication
     Dosage: 5 MG, QD
     Route: 065
     Dates: start: 20180207
  306. BISOPROLOL [Suspect]
     Active Substance: BISOPROLOL
     Dosage: 10 MG, QD
     Route: 065
  307. BISOPROLOL [Suspect]
     Active Substance: BISOPROLOL
     Dosage: 10 MG, QD
     Route: 065

REACTIONS (6)
  - Subarachnoid haemorrhage [Recovered/Resolved with Sequelae]
  - Intentional product misuse [Unknown]
  - Intentional product use issue [Unknown]
  - Subarachnoid haemorrhage [Recovered/Resolved with Sequelae]
  - Off label use [Recovered/Resolved with Sequelae]
  - Off label use [Recovered/Resolved with Sequelae]

NARRATIVE: CASE EVENT DATE: 20180207
